FAERS Safety Report 19077509 (Version 3)
Quarter: 2021Q2

REPORT INFORMATION
  Report Type: Report from Study
  Country: CA (occurrence: CA)
  Receive Date: 20210331
  Receipt Date: 20210615
  Transmission Date: 20210717
  Serious: Yes (Other)
  Sender: FDA-Public Use
  Company Number: CA-JNJFOC-20201112198

PATIENT
  Age: 39 Year
  Sex: Female
  Weight: 72 kg

DRUGS (1)
  1. REMICADE [Suspect]
     Active Substance: INFLIXIMAB
     Indication: CROHN^S DISEASE
     Route: 042
     Dates: start: 20070515

REACTIONS (13)
  - Abdominal pain [Unknown]
  - Nausea [Unknown]
  - Therapeutic product effect decreased [Unknown]
  - Diarrhoea [Unknown]
  - Rectal haemorrhage [Unknown]
  - Bronchiolitis [Not Recovered/Not Resolved]
  - Hyperthermia [Unknown]
  - COVID-19 [Unknown]
  - Malaise [Unknown]
  - Candida infection [Unknown]
  - Lung disorder [Not Recovered/Not Resolved]
  - Pulmonary mass [Unknown]
  - Oral candidiasis [Unknown]

NARRATIVE: CASE EVENT DATE: 2020
